FAERS Safety Report 10578912 (Version 2)
Quarter: 2015Q3

REPORT INFORMATION
  Report Type: Spontaneous
  Country: US (occurrence: US)
  Receive Date: 20141112
  Receipt Date: 20150928
  Transmission Date: 20151125
  Serious: Yes (Hospitalization)
  Sender: FDA-Public Use
  Company Number: US-PFIZER INC-2014308239

PATIENT
  Age: 68 Year
  Sex: Female
  Weight: 87 kg

DRUGS (1)
  1. LYRICA [Suspect]
     Active Substance: PREGABALIN
     Indication: DIABETIC NEUROPATHY
     Dosage: 150 MG, 2X/DAY

REACTIONS (6)
  - Weight increased [Unknown]
  - Burning sensation [Unknown]
  - Drug effect incomplete [Unknown]
  - Memory impairment [Unknown]
  - Back disorder [Unknown]
  - Pain [Unknown]

NARRATIVE: CASE EVENT DATE: 201411
